FAERS Safety Report 6419359-9 (Version None)
Quarter: 2009Q4

REPORT INFORMATION
  Report Type: 
  Country: None (occurrence: None)
  Receive Date: 20091013
  Receipt Date: 20090714
  Transmission Date: 20100525
  Serious: Yes (Hospitalization)
  Sender: FDA-Public Use
  Company Number: 1000007337

PATIENT
  Age: 55 Year
  Sex: Male

DRUGS (6)
  1. LEXAPRO [Suspect]
     Indication: ANXIETY
     Dosage: 5 MG (5 MG, 1 IN 1 D), ORAL
     Route: 048
     Dates: start: 20090607, end: 20090608
  2. LEXAPRO [Suspect]
     Indication: DEPRESSION
     Dosage: 5 MG (5 MG, 1 IN 1 D), ORAL
     Route: 048
     Dates: start: 20090607, end: 20090608
  3. LEXAPRO [Suspect]
     Indication: ANXIETY
     Dosage: 2.5 MG (2.5 MG, 1 IN 1 D), ORAL
     Route: 048
     Dates: start: 20090611, end: 20090611
  4. LEXAPRO [Suspect]
     Indication: DEPRESSION
     Dosage: 2.5 MG (2.5 MG, 1 IN 1 D), ORAL
     Route: 048
     Dates: start: 20090611, end: 20090611
  5. ALPRAZOLAM [Concomitant]
  6. COMBIVENT [Concomitant]

REACTIONS (12)
  - ANXIETY [None]
  - BLOOD PRESSURE INCREASED [None]
  - DISORIENTATION [None]
  - DYSPNOEA [None]
  - FEELING JITTERY [None]
  - HEART RATE INCREASED [None]
  - HYPOAESTHESIA [None]
  - NERVOUSNESS [None]
  - PANIC ATTACK [None]
  - PARAESTHESIA [None]
  - SOMNOLENCE [None]
  - TREMOR [None]
